FAERS Safety Report 10398119 (Version 3)
Quarter: 2014Q3

REPORT INFORMATION
  Report Type: Spontaneous
  Country: US (occurrence: US)
  Receive Date: 20140821
  Receipt Date: 20140825
  Transmission Date: 20150326
  Serious: Yes (Death, Other)
  Sender: FDA-Public Use
  Company Number: US-UNITED THERAPEUTICS-UNT-2014-005478

PATIENT
  Age: 56 Year
  Sex: Female
  Weight: 86.16 kg

DRUGS (2)
  1. REMODULIN [Suspect]
     Active Substance: TREPROSTINIL
     Indication: PULMONARY ARTERIAL HYPERTENSION
     Dosage: 0.030 ?G/KG, CONTINUING
     Route: 058
     Dates: start: 20101223
  2. REMODULIN [Suspect]
     Active Substance: TREPROSTINIL
     Dosage: 0.03 ?G/KG, CONTINUING
     Route: 058
     Dates: start: 20110207

REACTIONS (2)
  - Hypotension [Unknown]
  - Pulmonary arterial hypertension [Fatal]

NARRATIVE: CASE EVENT DATE: 20140806
